FAERS Safety Report 8176385-X (Version None)
Quarter: 2012Q1

REPORT INFORMATION
  Report Type: 
  Country: None (occurrence: None)
  Receive Date: 20120301
  Receipt Date: 20120223
  Transmission Date: 20120608
  Serious: Yes (Other)
  Sender: FDA-Public Use
  Company Number: US-BAYER-201016348NA

PATIENT
  Age: 25 Year
  Sex: Female
  Weight: 61 kg

DRUGS (7)
  1. LORAZEPAM [Concomitant]
     Dosage: UNK
     Dates: start: 20090411
  2. DOXYCYCLINE HYCLATE [Concomitant]
     Dosage: UNK
     Dates: start: 20090411
  3. YASMIN [Suspect]
     Indication: CONTRACEPTION
     Dosage: UNK
     Route: 048
     Dates: start: 20070501, end: 20090101
  4. DROSPIRENONE AND ETHINYL ESTRADIOL [Suspect]
     Indication: CONTRACEPTION
     Dosage: UNK
     Route: 048
     Dates: start: 20070501, end: 20090101
  5. OXYCODONE HCL [Concomitant]
     Dosage: UNK
     Dates: start: 20090411
  6. PAPAVERINE [Concomitant]
     Dosage: UNK
     Dates: start: 20090416
  7. YAZ [Suspect]
     Indication: CONTRACEPTION
     Dosage: UNK
     Route: 048
     Dates: start: 20070501, end: 20090101

REACTIONS (2)
  - MENTAL STATUS CHANGES [None]
  - DEEP VEIN THROMBOSIS [None]
